FAERS Safety Report 4457376-9 (Version None)
Quarter: 2004Q3

REPORT INFORMATION
  Report Type: 
  Country: None (occurrence: None)
  Receive Date: 20040922
  Receipt Date: 20040902
  Transmission Date: 20050211
  Serious: Yes (Other)
  Sender: FDA-Public Use
  Company Number: USA030844002

PATIENT
  Age: 79 Year
  Sex: Female
  Weight: 56 kg

DRUGS (7)
  1. EVISTA [Suspect]
     Indication: OSTEOPOROSIS
     Dosage: 60 MG/DAY
  2. FORTEO [Suspect]
     Indication: OSTEOPOROSIS
     Dates: start: 20030616
  3. FOSAMAX [Concomitant]
  4. ATENOLOL [Concomitant]
  5. LOTREL [Concomitant]
  6. CLONAZEPAM [Concomitant]
  7. CALCIUM AND VITAMIN D [Concomitant]

REACTIONS (9)
  - ARTHRITIS [None]
  - BACK PAIN [None]
  - BONE DENSITY DECREASED [None]
  - BONE PAIN [None]
  - DRUG EFFECT DECREASED [None]
  - INJECTION SITE ERYTHEMA [None]
  - MUSCLE CRAMP [None]
  - PAIN EXACERBATED [None]
  - SPINAL FRACTURE [None]
